FAERS Safety Report 5351043-5 (Version None)
Quarter: 2007Q2

REPORT INFORMATION
  Report Type: 
  Country: None (occurrence: None)
  Receive Date: 20070606
  Receipt Date: 20070521
  Transmission Date: 20071010
  Serious: Yes (Life-Threatening, Hospitalization)
  Sender: FDA-Public Use
  Company Number: 2007000810

PATIENT
  Age: 49 Year
  Sex: Female

DRUGS (9)
  1. ERLOTINIB (TABLET) [Suspect]
     Indication: NON-SMALL CELL LUNG CANCER
     Dosage: 150 MG (QD); ORAL
     Route: 048
     Dates: start: 20060707, end: 20070412
  2. FASLODEX [Suspect]
     Dosage: 150 MG, INTRA-MUSCULAR
     Route: 030
     Dates: start: 20060707, end: 20070412
  3. BEVACIZUMAB (INJECTION FOR INFUSION) [Suspect]
     Dosage: INTRAVENOUS
     Route: 042
  4. GEMCITABINE [Concomitant]
  5. CARBOPLATIN [Concomitant]
  6. ESCITALOPRAM OXALATE [Concomitant]
  7. OXYCODONE HCL [Concomitant]
  8. ONDANSETRON HCL [Concomitant]
  9. PROCHLORPERAZINE MALEATE [Concomitant]

REACTIONS (2)
  - DISEASE PROGRESSION [None]
  - SUICIDAL IDEATION [None]
